FAERS Safety Report 5341047-0 (Version None)
Quarter: 2007Q2

REPORT INFORMATION
  Report Type: 
  Country: None (occurrence: None)
  Receive Date: 20070405
  Receipt Date: 20070126
  Transmission Date: 20071010
  Serious: No
  Sender: FDA-Public Use
  Company Number: US200701005392

PATIENT
  Age: 54 Year
  Sex: Female

DRUGS (4)
  1. CYMBALTA [Suspect]
     Indication: FIBROMYALGIA
     Dosage: 30 MG, DAILY (1/D), ORAL
     Route: 048
     Dates: start: 20061101
  2. SINEMET [Concomitant]
  3. LISINOPRIL [Concomitant]
  4. DARVOCET [Concomitant]

REACTIONS (4)
  - DRY SKIN [None]
  - HUNGER [None]
  - SINUS DISORDER [None]
  - SINUS HEADACHE [None]
